FAERS Safety Report 18691511 (Version 2)
Quarter: 2021Q1

REPORT INFORMATION
  Report Type: Spontaneous
  Country: US (occurrence: US)
  Receive Date: 20210101
  Receipt Date: 20210112
  Transmission Date: 20210419
  Serious: No
  Sender: FDA-Public Use
  Company Number: US-TEVA-2020-US-1864625

PATIENT

DRUGS (2)
  1. FLUTICASONE W/SALMETEROL [Suspect]
     Active Substance: FLUTICASONE PROPIONATE\SALMETEROL XINAFOATE
     Dosage: 113 MCG FLUTICASONE, 14 MCG SALMETEROL
     Route: 065
  2. FLUTICASONE W/SALMETEROL [Suspect]
     Active Substance: FLUTICASONE PROPIONATE\SALMETEROL XINAFOATE

REACTIONS (4)
  - Product formulation issue [Unknown]
  - Foreign body in respiratory tract [Unknown]
  - Foreign body in mouth [Unknown]
  - Cough [Not Recovered/Not Resolved]
